FAERS Safety Report 7531833-0 (Version None)
Quarter: 2011Q2

REPORT INFORMATION
  Report Type: 
  Country: None (occurrence: None)
  Receive Date: 20110608
  Receipt Date: 20110528
  Transmission Date: 20111010
  Serious: Yes (Hospitalization, Other)
  Sender: FDA-Public Use
  Company Number: US-ROCHE-780907

PATIENT
  Sex: Female
  Weight: 81.6 kg

DRUGS (1)
  1. CAPECITABINE [Suspect]
     Dosage: FREQUENCY: AT 4 AM AND 3 PM
     Route: 048
     Dates: start: 20110220

REACTIONS (5)
  - DIABETES MELLITUS [None]
  - BRONCHITIS [None]
  - FATIGUE [None]
  - DECREASED APPETITE [None]
  - DIARRHOEA [None]
